FAERS Safety Report 4959744-5 (Version None)
Quarter: 2006Q1

REPORT INFORMATION
  Report Type: 
  Country: None (occurrence: None)
  Receive Date: 20060327
  Receipt Date: 20060314
  Transmission Date: 20060701
  Serious: Yes (Hospitalization)
  Sender: FDA-Public Use
  Company Number: CIP06000643

PATIENT
  Age: 75 Year
  Sex: Female

DRUGS (3)
  1. FURADANTIN [Suspect]
     Indication: CYSTITIS
     Dosage: 1 DF DAILY, ORAL
     Route: 048
     Dates: start: 20041215, end: 20051228
  2. VALSARTAN [Suspect]
     Dosage: 160 MG DAILY, ORAL
     Route: 048
     Dates: end: 20060103
  3. LASIX [Concomitant]

REACTIONS (2)
  - CHOLANGITIS [None]
  - HEPATITIS CHOLESTATIC [None]
